FAERS Safety Report 20484759 (Version 5)
Quarter: 2022Q4

REPORT INFORMATION
  Report Type: Report from Study
  Country: US (occurrence: US)
  Receive Date: 20220217
  Receipt Date: 20221104
  Transmission Date: 20230113
  Serious: No
  Sender: FDA-Public Use
  Company Number: US-NOVARTISTESTPH-NVSC2022US036734

PATIENT
  Sex: Female

DRUGS (2)
  1. COSENTYX [Suspect]
     Active Substance: SECUKINUMAB
     Indication: Psoriasis
     Dosage: UNK
     Route: 065
  2. COSENTYX [Suspect]
     Active Substance: SECUKINUMAB
     Indication: Psoriatic arthropathy
     Dosage: 300 MG (WEEK 0, 1, 2, 3, 4 AND EVERY 4 WEEKS THEREAFTER)
     Route: 058

REACTIONS (3)
  - Pain [Not Recovered/Not Resolved]
  - Arthralgia [Unknown]
  - Skin lesion [Not Recovered/Not Resolved]
